FAERS Safety Report 5721523-9 (Version None)
Quarter: 2008Q2

REPORT INFORMATION
  Report Type: 
  Country: None (occurrence: None)
  Receive Date: 20080428
  Receipt Date: 20080428
  Transmission Date: 20081010
  Serious: Yes (Hospitalization)
  Sender: FDA-Public Use
  Company Number: None

PATIENT
  Age: 65 Year
  Sex: Female
  Weight: 63.5036 kg

DRUGS (1)
  1. FOSAMAX [Suspect]
     Indication: BONE DENSITY DECREASED
     Dosage: 1 PILL  1 TIME PER WEEK  PO
     Route: 048
     Dates: start: 20030101, end: 20080301

REACTIONS (3)
  - CARDIAC FLUTTER [None]
  - CHEST DISCOMFORT [None]
  - DYSPEPSIA [None]
